FAERS Safety Report 4856164-9 (Version None)
Quarter: 2005Q4

REPORT INFORMATION
  Report Type: 
  Country: None (occurrence: None)
  Receive Date: 20051216
  Receipt Date: 20051206
  Transmission Date: 20060501
  Serious: Yes (Hospitalization, Disabling)
  Sender: FDA-Public Use
  Company Number: CA-MERCK-0512CAN00056

PATIENT
  Age: 62 Year
  Sex: Male
  Weight: 82 kg

DRUGS (6)
  1. VIOXX [Suspect]
     Indication: BACK PAIN
     Route: 048
     Dates: start: 20000101, end: 20040701
  2. DERMATOLOGIC (UNSPECIFIED) [Concomitant]
     Route: 065
  3. OXYCODONE HYDROCHLORIDE [Concomitant]
     Route: 065
  4. ORPHENADRINE CITRATE [Concomitant]
     Route: 065
  5. ACETAMINOPHEN AND CODEINE PHOSPHATE [Concomitant]
     Route: 065
  6. NAPROXEN [Concomitant]
     Route: 065

REACTIONS (3)
  - ANGINA UNSTABLE [None]
  - CORONARY ARTERY DISEASE [None]
  - MYOCARDIAL INFARCTION [None]
